FAERS Safety Report 4495845-6 (Version None)
Quarter: 2004Q4

REPORT INFORMATION
  Report Type: 
  Country: None (occurrence: None)
  Receive Date: 20041108
  Receipt Date: 20041028
  Transmission Date: 20050328
  Serious: Yes (Other)
  Sender: FDA-Public Use
  Company Number: CH-GLAXOSMITHKLINE-B0350605A

PATIENT
  Age: 22 Year
  Sex: Female

DRUGS (6)
  1. DEROXAT [Suspect]
     Indication: DRUG USE FOR UNKNOWN INDICATION
     Dosage: 40MG PER DAY
     Route: 048
  2. METHADONE [Suspect]
     Indication: DRUG DEPENDENCE
     Dosage: 20MG PER DAY
     Route: 048
  3. SURMONTIL [Suspect]
     Indication: DRUG USE FOR UNKNOWN INDICATION
     Dosage: 50MG PER DAY
     Route: 048
     Dates: start: 20040716, end: 20040725
  4. LITHIUM SULPHATE [Suspect]
     Indication: DRUG USE FOR UNKNOWN INDICATION
     Dosage: 1320MG PER DAY
     Route: 048
     Dates: start: 20040407
  5. BEROCCA [Suspect]
     Indication: DRUG USE FOR UNKNOWN INDICATION
     Route: 048
     Dates: start: 20040708
  6. VALIUM [Suspect]
     Indication: DRUG USE FOR UNKNOWN INDICATION
     Dosage: 10MG PER DAY
     Route: 048
     Dates: start: 20040714

REACTIONS (3)
  - DRUG INTERACTION [None]
  - ELECTROCARDIOGRAM QT PROLONGED [None]
  - TRANSAMINASES INCREASED [None]
